FAERS Safety Report 8496177-1 (Version None)
Quarter: 2012Q3

REPORT INFORMATION
  Report Type: 
  Country: None (occurrence: None)
  Receive Date: 20120709
  Receipt Date: 20120625
  Transmission Date: 20120928
  Serious: No
  Sender: FDA-Public Use
  Company Number: US-ASTRAZENECA-2012SE42762

PATIENT
  Sex: Male

DRUGS (1)
  1. SYMBICORT [Suspect]
     Dosage: 80/4.5 MCG 1 PUFF TWICE DAILY
     Route: 055

REACTIONS (3)
  - WHEEZING [None]
  - OFF LABEL USE [None]
  - DRUG DOSE OMISSION [None]
